FAERS Safety Report 4301257-8 (Version None)
Quarter: 2004Q1

REPORT INFORMATION
  Report Type: 
  Country: None (occurrence: None)
  Receive Date: 20040219
  Receipt Date: 20040205
  Transmission Date: 20041129
  Serious: Yes (Other)
  Sender: FDA-Public Use
  Company Number: 2004008270

PATIENT
  Age: 42 Year
  Sex: Male
  Weight: 80 kg

DRUGS (3)
  1. HYDROCORTISONE [Suspect]
     Indication: ECZEMA
     Dosage: UNSPECIFIED AMOUNT DAILY, TOPICAL
     Route: 061
     Dates: start: 19990101, end: 20010101
  2. BETAMETHASONE [Suspect]
     Indication: ECZEMA
     Dosage: UNSPECIFIED AMOUNT DAILY, TOPICAL
     Route: 061
     Dates: start: 19990101, end: 20010101
  3. DIPROSALIC (ACETYLSALICYLIC ACID, BETAMETHASONE DIPROPIONATE) [Suspect]
     Indication: ECZEMA
     Dosage: UNSPECIFIED AMOUNT DAILY, TOPICAL
     Route: 061
     Dates: start: 19990101, end: 20010101

REACTIONS (4)
  - CORNEAL OEDEMA [None]
  - GLAUCOMA [None]
  - MYDRIASIS [None]
  - PUPIL FIXED [None]
